FAERS Safety Report 8370412-2 (Version None)
Quarter: 2012Q2

REPORT INFORMATION
  Report Type: 
  Country: None (occurrence: None)
  Receive Date: 20120518
  Receipt Date: 20120509
  Transmission Date: 20120825
  Serious: Yes (Other)
  Sender: FDA-Public Use
  Company Number: US-ASTRAZENECA-2011SE59323

PATIENT
  Age: 62 Year
  Sex: Male

DRUGS (1)
  1. SYMBICORT [Suspect]
     Route: 055
     Dates: start: 20090101

REACTIONS (3)
  - HYPERTENSION [None]
  - HEMIPLEGIA [None]
  - CEREBROVASCULAR ACCIDENT [None]
